FAERS Safety Report 26112388 (Version 3)
Quarter: 2025Q4

REPORT INFORMATION
  Report Type: Spontaneous
  Country: JP (occurrence: JP)
  Receive Date: 20251202
  Receipt Date: 20251224
  Transmission Date: 20260118
  Serious: Yes (Other)
  Sender: PFIZER
  Company Number: JP-PFIZER INC-PV202500138001

PATIENT
  Age: 35 Year
  Sex: Male

DRUGS (3)
  1. CYTARABINE [Suspect]
     Active Substance: CYTARABINE
     Indication: Myelodysplastic syndrome
     Dosage: 15 MG, CYCLIC (EVERY 12 HOURS, DAY 1 TO 7)
     Route: 058
     Dates: start: 199607, end: 1996
  2. FILGRASTIM [Suspect]
     Active Substance: FILGRASTIM
     Indication: Myelodysplastic syndrome
     Dosage: 300 UG, CYCLIC
     Route: 058
     Dates: start: 199607, end: 1996
  3. ACLARUBICIN [Suspect]
     Active Substance: ACLARUBICIN
     Indication: Myelodysplastic syndrome
     Dosage: 20 MG, CYCLIC (DAY 1-4)
     Route: 042
     Dates: start: 199607, end: 1996

REACTIONS (4)
  - Pyoderma gangrenosum [Recovered/Resolved]
  - Disease recurrence [Recovered/Resolved]
  - Bone marrow failure [Unknown]
  - Off label use [Unknown]

NARRATIVE: CASE EVENT DATE: 19960101
